FAERS Safety Report 4466990-6 (Version None)
Quarter: 2004Q3

REPORT INFORMATION
  Report Type: 
  Country: None (occurrence: None)
  Receive Date: 20040930
  Receipt Date: 20040915
  Transmission Date: 20050211
  Serious: Yes (Hospitalization)
  Sender: FDA-Public Use
  Company Number: 2004-BP-04120BP

PATIENT
  Age: 55 Year
  Sex: Female
  Weight: 54 kg

DRUGS (9)
  1. MICARDIS HCT [Suspect]
     Indication: HYPERTENSION
     Dosage: SEE TEXT (SEE TEXT, 80MG/25MG), PO
     Route: 048
     Dates: start: 20040330, end: 20040521
  2. LIPITOR [Concomitant]
  3. ZETIA [Concomitant]
  4. PRILOSEC [Concomitant]
  5. ASPIRIN [Concomitant]
  6. MULTIVITAMIN [Concomitant]
  7. CALCIUM [Concomitant]
  8. ANTIVERT [Concomitant]
  9. NORFLEX [Concomitant]

REACTIONS (10)
  - ANXIETY [None]
  - BACK PAIN [None]
  - CHEST PAIN [None]
  - DYSPEPSIA [None]
  - DYSPNOEA [None]
  - HYPERTENSION [None]
  - LIGAMENT SPRAIN [None]
  - PAIN IN EXTREMITY [None]
  - PARAESTHESIA [None]
  - VIRAL LABYRINTHITIS [None]
